FAERS Safety Report 8613292 (Version 2)
Quarter: 2012Q4

REPORT INFORMATION
  Report Type: Report from Study
  Country: CA (occurrence: CA)
  Receive Date: 20120613
  Receipt Date: 20121105
  Transmission Date: 20130627
  Serious: Yes (Hospitalization, Other)
  Sender: FDA-Public Use
  Company Number: CA-ABBOTT-12P-028-0944130-00

PATIENT
  Sex: Male
  Weight: 81.72 kg

DRUGS (1)
  1. LUPRON DEPOT 30 MG [Suspect]
     Indication: PROSTATE CANCER
     Dates: start: 20111026

REACTIONS (6)
  - Pain in extremity [Unknown]
  - Oedema peripheral [Unknown]
  - Pneumonia [Unknown]
  - Condition aggravated [Unknown]
  - Cerebrovascular accident [Unknown]
  - Clostridium difficile infection [Unknown]
